FAERS Safety Report 16533452 (Version 1)
Quarter: 2019Q3

REPORT INFORMATION
  Report Type: Report from Study
  Country: DE (occurrence: DE)
  Receive Date: 20190704
  Receipt Date: 20190704
  Transmission Date: 20191004
  Serious: Yes (Other)
  Sender: FDA-Public Use
  Company Number: PHHY2019DE132603

PATIENT
  Sex: Female
  Weight: 89 kg

DRUGS (6)
  1. COSENTYX [Suspect]
     Active Substance: SECUKINUMAB
     Dosage: 150 MG, ONCE (PREFILLED PEN)
     Route: 065
     Dates: start: 20180710
  2. COSENTYX [Suspect]
     Active Substance: SECUKINUMAB
     Dosage: 150 MG, ONCE (PREFILLED PEN)
     Route: 065
     Dates: start: 20180724
  3. COSENTYX [Suspect]
     Active Substance: SECUKINUMAB
     Dosage: 150 MG, ONCE (PREFILLED PEN)
     Route: 065
     Dates: start: 20180717
  4. COSENTYX [Suspect]
     Active Substance: SECUKINUMAB
     Dosage: 150 MG, ONCE (PREFILLED PEN)
     Route: 065
     Dates: start: 20180830, end: 20180830
  5. COSENTYX [Suspect]
     Active Substance: SECUKINUMAB
     Indication: ANKYLOSING SPONDYLITIS
     Dosage: 150 MG, ONCE (PREFILLED PEN)
     Route: 065
     Dates: start: 20180703
  6. COSENTYX [Suspect]
     Active Substance: SECUKINUMAB
     Dosage: 150 MG, ONCE (PREFILLED PEN)
     Route: 065
     Dates: start: 20180731

REACTIONS (2)
  - Syncope [Recovered/Resolved]
  - Necrotising ulcerative gingivostomatitis [Recovered/Resolved]

NARRATIVE: CASE EVENT DATE: 201808
